FAERS Safety Report 7983557-3 (Version None)
Quarter: 2011Q4

REPORT INFORMATION
  Report Type: 
  Country: None (occurrence: None)
  Receive Date: 20111215
  Receipt Date: 20111208
  Transmission Date: 20120403
  Serious: Yes (Hospitalization)
  Sender: FDA-Public Use
  Company Number: JP-CEPHALON-2011002517

PATIENT
  Sex: Female

DRUGS (13)
  1. RITUXIMAB [Suspect]
     Route: 042
     Dates: start: 20110412, end: 20110412
  2. BENDAMUSTINE HCL [Suspect]
     Route: 042
     Dates: start: 20110413, end: 20110414
  3. AMLODIPINE [Concomitant]
     Dates: start: 20060101
  4. FLUCONAZOLE [Concomitant]
     Dates: start: 20110322
  5. BETAMETHASONE VALERATE [Concomitant]
     Dates: start: 20110403
  6. CLOBETASOL PROPIONATE [Concomitant]
     Dates: start: 20110403, end: 20110601
  7. ALLOPURINOL [Concomitant]
     Dates: start: 20110322
  8. ZOVIRAX [Concomitant]
     Dates: start: 20110322
  9. BENDAMUSTINE HCL [Suspect]
     Indication: DIFFUSE LARGE B-CELL LYMPHOMA
     Route: 042
     Dates: start: 20110323, end: 20110324
  10. RITUXIMAB [Suspect]
     Indication: DIFFUSE LARGE B-CELL LYMPHOMA
     Route: 042
     Dates: start: 20110322, end: 20110322
  11. LANSOPRAZOLE [Concomitant]
     Dates: start: 20110322
  12. NEO-MINOPHAGEN C [Concomitant]
     Dates: start: 20110422
  13. SULFAMETHOXAZOLE AND TRIMETHOPRIM [Concomitant]
     Dates: start: 20110322

REACTIONS (5)
  - CYTOMEGALOVIRUS INFECTION [None]
  - RASH MACULO-PAPULAR [None]
  - LIVER INJURY [None]
  - MALAISE [None]
  - HEPATITIS B [None]
